FAERS Safety Report 9694609 (Version 1)
Quarter: 2013Q4

REPORT INFORMATION
  Report Type: Spontaneous
  Country: FR (occurrence: FR)
  Receive Date: 20131118
  Receipt Date: 20131118
  Transmission Date: 20140711
  Serious: Yes (Other)
  Sender: FDA-Public Use
  Company Number: FR-ABBVIE-13P-056-1157539-00

PATIENT
  Age: 55 Year
  Sex: Female

DRUGS (3)
  1. DEPAKINE [Suspect]
     Route: 048
     Dates: start: 1978, end: 20130731
  2. KARDEGIC [Concomitant]
     Indication: PRODUCT USED FOR UNKNOWN INDICATION
  3. OLMETEC [Concomitant]
     Indication: PRODUCT USED FOR UNKNOWN INDICATION

REACTIONS (5)
  - Abnormal behaviour [Unknown]
  - Obsessive thoughts [Unknown]
  - Cerebral atrophy [Unknown]
  - Encephalopathy [Unknown]
  - Agitation [Unknown]
